FAERS Safety Report 9511421 (Version 1)
Quarter: 2013Q3

REPORT INFORMATION
  Report Type: Spontaneous
  Country: US (occurrence: US)
  Receive Date: 20130910
  Receipt Date: 20130910
  Transmission Date: 20140515
  Serious: Yes (Other)
  Sender: FDA-Public Use
  Company Number: US-BRISTOL-MYERS SQUIBB COMPANY-19236280

PATIENT
  Age: 59 Year
  Sex: Male
  Weight: 102.04 kg

DRUGS (8)
  1. ELIQUIS [Suspect]
     Indication: ATRIAL FIBRILLATION
     Dosage: ONE AT 10AM AND ONE AT 10PM.
  2. AZOR [Concomitant]
     Dosage: AZOR 5/20
  3. GABAPENTIN [Concomitant]
  4. AMBIEN [Concomitant]
     Dosage: 2 TABS AT NIGHT
  5. TRAZODONE HCL [Concomitant]
     Dosage: AT NIGHT
  6. MULTIVITAMIN [Concomitant]
  7. GLUCOSAMINE [Concomitant]
  8. PRILOSEC [Concomitant]

REACTIONS (4)
  - Angina pectoris [Recovering/Resolving]
  - Abdominal pain upper [Not Recovered/Not Resolved]
  - Eructation [Unknown]
  - Nausea [Not Recovered/Not Resolved]
